FAERS Safety Report 9444680 (Version 1)
Quarter: 2013Q3

REPORT INFORMATION
  Report Type: Spontaneous
  Country: US (occurrence: None)
  Receive Date: 20130806
  Receipt Date: 20130806
  Transmission Date: 20140515
  Serious: No
  Sender: FDA-Public Use
  Company Number: None

PATIENT
  Age: 50 None
  Sex: Female

DRUGS (9)
  1. LORAZEPAM [Suspect]
     Indication: ANXIETY
     Route: 048
     Dates: start: 20070101
  2. ABILIFY [Concomitant]
  3. LAMOTRIGINE [Concomitant]
  4. VITAMIN D3 [Concomitant]
  5. CALCIUM-MAGNESIUM-ZINCE [Concomitant]
  6. COPPER TABLET [Concomitant]
  7. VITAMIN C [Concomitant]
  8. WHEY PROTEIN [Concomitant]
  9. SOY PROTEIN [Concomitant]

REACTIONS (2)
  - Anxiety [None]
  - Condition aggravated [None]
